FAERS Safety Report 4390161-5 (Version None)
Quarter: 2004Q2

REPORT INFORMATION
  Report Type: 
  Country: None (occurrence: None)
  Receive Date: 20040630
  Receipt Date: 20040618
  Transmission Date: 20050107
  Serious: Yes (Other)
  Sender: FDA-Public Use
  Company Number: 200410481BCA

PATIENT
  Age: 78 Year
  Sex: Male

DRUGS (11)
  1. ASPIRIN [Suspect]
     Dosage: 81 MG, TOTAL DAILY, ORAL
     Route: 048
  2. INTEGRILIN [Suspect]
     Dosage: INTRAVENOUS
  3. PLAVIX [Suspect]
  4. GRAVOL TAB [Concomitant]
  5. LIPITOR [Concomitant]
  6. LITHIUM [Concomitant]
  7. MONOCOR [Concomitant]
  8. NITRO-DUR [Concomitant]
  9. RAMIPRIL [Concomitant]
  10. VALIUM [Concomitant]
  11. HEPARIN [Suspect]
     Dosage: 750 MG TOTAL DAILY ORAL
     Route: 048

REACTIONS (4)
  - ANAEMIA [None]
  - BLOOD URINE [None]
  - CORONARY ARTERY DISEASE [None]
  - THROMBOCYTOPENIA [None]
